FAERS Safety Report 18127883 (Version 2)
Quarter: 2021Q2

REPORT INFORMATION
  Report Type: Spontaneous
  Country: None (occurrence: US)
  Receive Date: 20200810
  Receipt Date: 20210625
  Transmission Date: 20210717
  Serious: Yes (Other)
  Sender: FDA-Public Use
  Company Number: US-GLAXOSMITHKLINE-US2020154381

PATIENT
  Sex: Female

DRUGS (6)
  1. ZANTAC [Suspect]
     Active Substance: RANITIDINE HYDROCHLORIDE
     Indication: HIATUS HERNIA
     Dosage: 150 MG, QD
     Route: 065
     Dates: start: 200009, end: 201905
  2. RANITIDINE. [Suspect]
     Active Substance: RANITIDINE
     Indication: HIATUS HERNIA
     Dosage: 150 MG, QD
     Route: 065
     Dates: start: 201705, end: 201905
  3. RANITIDINE. [Suspect]
     Active Substance: RANITIDINE
  4. ZANTAC [Suspect]
     Active Substance: RANITIDINE HYDROCHLORIDE
     Indication: HIATUS HERNIA
     Dosage: 150 MG, QD
     Route: 065
     Dates: start: 200009, end: 201905
  5. RANITIDINE CAPSULE [Suspect]
     Active Substance: RANITIDINE
     Indication: HIATUS HERNIA
     Dosage: 150 MG, QD
     Route: 065
     Dates: start: 201705, end: 201905
  6. ZANTAC [Suspect]
     Active Substance: RANITIDINE HYDROCHLORIDE

REACTIONS (1)
  - Lung neoplasm malignant [Unknown]
